FAERS Safety Report 13121940 (Version 2)
Quarter: 2017Q1

REPORT INFORMATION
  Report Type: Spontaneous
  Country: CH (occurrence: CH)
  Receive Date: 20170117
  Receipt Date: 20170130
  Transmission Date: 20170428
  Serious: Yes (Death, Hospitalization)
  Sender: FDA-Public Use
  Company Number: CH-NORTHSTAR HEALTHCARE HOLDINGS-CH-2017NSR000003

PATIENT
  Age: 78 Year
  Sex: Female

DRUGS (1)
  1. ALLOPURINOL. [Suspect]
     Active Substance: ALLOPURINOL
     Indication: HYPERURICAEMIA
     Dosage: UNK

REACTIONS (12)
  - Leukocytosis [Recovering/Resolving]
  - Confusional state [Recovering/Resolving]
  - Rash [Recovering/Resolving]
  - Cardiac failure [Fatal]
  - Chest pain [Fatal]
  - Thrombotic microangiopathy [Fatal]
  - Dyspnoea [Fatal]
  - Eosinophil count increased [Recovering/Resolving]
  - Papillary muscle rupture [Fatal]
  - Eosinophilic myocarditis [Fatal]
  - Thrombocytopenia [Recovering/Resolving]
  - Drug reaction with eosinophilia and systemic symptoms [Recovering/Resolving]
